FAERS Safety Report 5058925-2 (Version None)
Quarter: 2006Q2

REPORT INFORMATION
  Report Type: 
  Country: None (occurrence: None)
  Receive Date: 20060627
  Receipt Date: 20050822
  Transmission Date: 20061013
  Serious: Yes (Hospitalization)
  Sender: FDA-Public Use
  Company Number: 2005BH001250

PATIENT

DRUGS (1)
  1. HEPARIN SODIUM [Suspect]
     Indication: DIALYSIS
     Dosage: IV
     Route: 042
     Dates: start: 20050808

REACTIONS (1)
  - HAEMORRHAGE [None]
